FAERS Safety Report 7878368-3 (Version None)
Quarter: 2011Q4

REPORT INFORMATION
  Report Type: 
  Country: None (occurrence: None)
  Receive Date: 20111028
  Receipt Date: 20111017
  Transmission Date: 20120403
  Serious: Yes (Other)
  Sender: FDA-Public Use
  Company Number: NO-ACCORD-010903

PATIENT

DRUGS (8)
  1. CYCLOPHOSPHAMIDE [Suspect]
     Indication: HODGKIN'S DISEASE
     Dosage: 650.00-MG/M2 / INTRAVENOS (NOT OTHERWISE SPECIFIED)
     Route: 042
  2. DOXORUBICIN HCL [Suspect]
     Indication: HODGKIN'S DISEASE
     Dosage: 25.00-MG/M2 / INTRAVENOUS (NOT OTHERWISE SPECIFIED)
     Route: 042
  3. PROCARBAZINE HYDROCHLORIDE [Suspect]
     Indication: HODGKIN'S DISEASE
     Dosage: 100.00-MG/M2 / ORAL
     Route: 048
  4. ETOPOSIDE [Suspect]
     Indication: HODGKIN'S DISEASE
     Dosage: 100.00-MG/M2/ INTRAVENOUS (NOT OTHERWISE SPECIFIED)
     Route: 042
  5. G-CSF (G-CSF) [Suspect]
     Indication: HODGKIN'S DISEASE
  6. PREDNISOLONE [Suspect]
     Indication: HODGKIN'S DISEASE
     Dosage: 40.00-MG/M2 / ORAL
     Route: 048
  7. VINCRISTINE [Suspect]
     Indication: HODGKIN'S DISEASE
     Dosage: 1.40-MG/M2 / INTRAVENOUS (NOT OTHERWISE SPECIFIED)
     Route: 042
  8. BLEOMYCIN SULFATE [Suspect]
     Indication: HODGKIN'S DISEASE
     Dosage: 10000.00-LU- / INTRAVENOUS (NOT OTHERWISE SPECIFIED)

REACTIONS (3)
  - OFF LABEL USE [None]
  - HERPES ZOSTER [None]
  - INFECTION IN AN IMMUNOCOMPROMISED HOST [None]
